FAERS Safety Report 5887518-X (Version None)
Quarter: 2008Q3

REPORT INFORMATION
  Report Type: 
  Country: None (occurrence: None)
  Receive Date: 20080918
  Receipt Date: 20080910
  Transmission Date: 20090109
  Serious: Yes (Disabling)
  Sender: FDA-Public Use
  Company Number: PHHY2008IT20902

PATIENT

DRUGS (1)
  1. ZOMETA [Suspect]
     Dosage: UNK
     Dates: start: 20010101, end: 20070101

REACTIONS (4)
  - BONE LESION [None]
  - JAW DISORDER [None]
  - MASTICATION DISORDER [None]
  - OSTEONECROSIS [None]
